FAERS Safety Report 8249330-6 (Version None)
Quarter: 2012Q2

REPORT INFORMATION
  Report Type: 
  Country: None (occurrence: None)
  Receive Date: 20120402
  Receipt Date: 20120324
  Transmission Date: 20120825
  Serious: Yes (Other)
  Sender: FDA-Public Use
  Company Number: US-US-EMD SERONO, INC.-7121294

PATIENT
  Sex: Male

DRUGS (1)
  1. EGRIFTA [Suspect]
     Indication: LIPODYSTROPHY ACQUIRED
     Route: 058

REACTIONS (4)
  - VASCULAR OCCLUSION [None]
  - OEDEMA PERIPHERAL [None]
  - ARTHROPATHY [None]
  - MUSCLE SPASMS [None]
